FAERS Safety Report 8548481-6 (Version None)
Quarter: 2012Q3

REPORT INFORMATION
  Report Type: 
  Country: None (occurrence: None)
  Receive Date: 20120730
  Receipt Date: 20120717
  Transmission Date: 20120928
  Serious: Yes (Other)
  Sender: FDA-Public Use
  Company Number: IT-JNJFOC-20120709565

PATIENT
  Age: 54 Year
  Sex: Female

DRUGS (4)
  1. HALOPERIDOL [Suspect]
     Indication: PSYCHOMOTOR HYPERACTIVITY
     Route: 065
  2. MIDAZOLAM [Suspect]
     Indication: PSYCHOMOTOR HYPERACTIVITY
     Route: 065
  3. DIAZEPAM [Suspect]
     Indication: PSYCHOMOTOR HYPERACTIVITY
     Route: 065
  4. CHLORPROMAZINE HCL [Suspect]
     Indication: PSYCHOMOTOR HYPERACTIVITY
     Route: 065

REACTIONS (5)
  - HYPOTHERMIA [None]
  - HYPERNATRAEMIA [None]
  - ELECTROCARDIOGRAM QT PROLONGED [None]
  - HYPOTENSION [None]
  - SINUS BRADYCARDIA [None]
